FAERS Safety Report 4916013-7 (Version None)
Quarter: 2006Q1

REPORT INFORMATION
  Report Type: 
  Country: None (occurrence: None)
  Receive Date: 20060217
  Receipt Date: 20060130
  Transmission Date: 20060701
  Serious: Yes (Hospitalization)
  Sender: FDA-Public Use
  Company Number: BR-ABBOTT-06P-020-0324307-00

PATIENT
  Sex: Male

DRUGS (9)
  1. KALETRA [Suspect]
     Indication: HIV INFECTION
     Route: 048
     Dates: start: 20031021, end: 20040510
  2. RITONAVIR SOFT GELATIN CAPSULES [Suspect]
     Indication: HIV INFECTION
     Dates: end: 20040510
  3. TIPRANAVIR [Suspect]
     Indication: HIV INFECTION
     Dates: end: 20040510
  4. BEZAFIBRATE [Concomitant]
     Indication: DYSLIPIDAEMIA
     Route: 048
     Dates: end: 20031216
  5. BEZAFIBRATE [Concomitant]
     Route: 048
     Dates: start: 20031216, end: 20040203
  6. CITALOPRAM HYDROBROMIDE [Concomitant]
     Indication: DEPRESSION
     Route: 048
     Dates: start: 20031024, end: 20040113
  7. CITALOPRAM HYDROBROMIDE [Concomitant]
     Route: 048
     Dates: start: 20040113
  8. CLONAZEPAM [Concomitant]
     Indication: DEPRESSION
     Route: 048
     Dates: start: 20031202, end: 20051216
  9. MEGESTROL [Concomitant]
     Indication: WEIGHT DECREASED
     Dosage: 40 MG/ML
     Route: 048
     Dates: start: 20040309, end: 20040510

REACTIONS (6)
  - ANAL FISTULA [None]
  - CONDITION AGGRAVATED [None]
  - DIARRHOEA [None]
  - PAIN [None]
  - PERIANAL ABSCESS [None]
  - TUBERCULOSIS GASTROINTESTINAL [None]
